FAERS Safety Report 21688556 (Version 2)
Quarter: 2023Q1

REPORT INFORMATION
  Report Type: Spontaneous
  Country: US (occurrence: US)
  Receive Date: 20221206
  Receipt Date: 20230103
  Transmission Date: 20230417
  Serious: No
  Sender: FDA-Public Use
  Company Number: US-PFIZER INC-202201343129

PATIENT
  Age: 79 Year
  Sex: Female
  Weight: 79.38 kg

DRUGS (2)
  1. PAXLOVID [Suspect]
     Active Substance: NIRMATRELVIR\RITONAVIR
     Indication: COVID-19 treatment
     Dosage: UNK
     Dates: start: 20221020, end: 202210
  2. CELEBREX [Suspect]
     Active Substance: CELECOXIB
     Indication: Arthropathy
     Dosage: UNK UNK, AS NEEDED, OCCASIONALLY 3 DAYS IN A ROW

REACTIONS (3)
  - Dysgeusia [Recovered/Resolved]
  - Therapeutic response unexpected [Unknown]
  - Cardiac disorder [Unknown]

NARRATIVE: CASE EVENT DATE: 20221001
